FAERS Safety Report 7183641-0 (Version None)
Quarter: 2010Q4

REPORT INFORMATION
  Report Type: 
  Country: None (occurrence: None)
  Receive Date: 20101222
  Receipt Date: 20101215
  Transmission Date: 20110411
  Serious: Yes (Death)
  Sender: FDA-Public Use
  Company Number: US-CUBIST-2010S1001786

PATIENT
  Age: 54 Year
  Weight: 70 kg

DRUGS (6)
  1. VANCOMYCIN [Concomitant]
     Dosage: DOSE UNIT:1
  2. LEVOFLOXACIN [Concomitant]
     Route: 042
  3. PIPERACILLIN W/TAZOBACTAM [Concomitant]
     Dosage: DOSE UNIT:3.375
  4. NAFCILLIN [Concomitant]
  5. CUBICIN [Suspect]
     Indication: STAPHYLOCOCCAL BACTERAEMIA
     Route: 042
  6. CUBICIN [Suspect]
     Route: 042

REACTIONS (2)
  - NEUROLOGICAL DECOMPENSATION [None]
  - TERMINAL STATE [None]
